FAERS Safety Report 19027620 (Version 1)
Quarter: 2021Q1

REPORT INFORMATION
  Report Type: Spontaneous
  Country: US (occurrence: US)
  Receive Date: 20210318
  Receipt Date: 20210318
  Transmission Date: 20210420
  Serious: No
  Sender: FDA-Public Use
  Company Number: US-ASTRAZENECA-2021A068640

PATIENT
  Age: 69 Year
  Sex: Female

DRUGS (2)
  1. BRILINTA [Suspect]
     Active Substance: TICAGRELOR
     Route: 048
  2. XELJANZ [Suspect]
     Active Substance: TOFACITINIB CITRATE
     Route: 065

REACTIONS (5)
  - Illness [Unknown]
  - Abdominal pain upper [Unknown]
  - Gastritis [Unknown]
  - Gastrointestinal ulcer [Unknown]
  - Nausea [Unknown]
